FAERS Safety Report 23935107 (Version 1)
Quarter: 2024Q2

REPORT INFORMATION
  Report Type: Spontaneous
  Country: US (occurrence: US)
  Receive Date: 20240604
  Receipt Date: 20240604
  Transmission Date: 20240716
  Serious: No
  Sender: FDA-Public Use
  Company Number: US-SUN PHARMACEUTICAL INDUSTRIES LTD-2024R1-431599

PATIENT
  Age: 66 Year
  Sex: Male

DRUGS (2)
  1. BROMSITE [Suspect]
     Active Substance: BROMFENAC SODIUM
     Indication: Eye inflammation
     Dosage: 1 DROP, BID
     Route: 065
     Dates: start: 20240126, end: 20240203
  2. BROMSITE [Suspect]
     Active Substance: BROMFENAC SODIUM
     Indication: Retinal detachment

REACTIONS (3)
  - Product dose omission issue [Unknown]
  - Product availability issue [Unknown]
  - Product container issue [Unknown]

NARRATIVE: CASE EVENT DATE: 20240204
